FAERS Safety Report 9693197 (Version 1)
Quarter: 2013Q4

REPORT INFORMATION
  Report Type: Spontaneous
  Country: US (occurrence: US)
  Receive Date: 20131118
  Receipt Date: 20131118
  Transmission Date: 20140711
  Serious: Yes (Hospitalization, Other)
  Sender: FDA-Public Use
  Company Number: US-CELGENEUS-163-21880-13111806

PATIENT
  Sex: Male
  Weight: 67.84 kg

DRUGS (17)
  1. REVLIMID [Suspect]
     Indication: AMYLOIDOSIS
     Dosage: 7.5 MILLIGRAM
     Route: 048
     Dates: start: 201212, end: 201304
  2. DEXAMETHASONE [Concomitant]
     Indication: AMYLOIDOSIS
     Route: 048
     Dates: start: 2012, end: 2012
  3. DEXAMETHASONE [Concomitant]
     Route: 048
     Dates: start: 201212
  4. ASPIRIN [Concomitant]
     Indication: THROMBOSIS PROPHYLAXIS
     Dosage: 81 MILLIGRAM
     Route: 065
  5. PLATELET [Concomitant]
     Indication: PRODUCT USED FOR UNKNOWN INDICATION
     Route: 041
  6. PRBCS [Concomitant]
     Indication: PRODUCT USED FOR UNKNOWN INDICATION
     Route: 041
  7. SIMVASTATIN [Concomitant]
     Indication: PRODUCT USED FOR UNKNOWN INDICATION
     Dosage: 40 MILLIGRAM
     Route: 048
  8. JANUVIA [Concomitant]
     Indication: PRODUCT USED FOR UNKNOWN INDICATION
     Dosage: 50 MILLIGRAM
     Route: 048
  9. ACTOS [Concomitant]
     Indication: PRODUCT USED FOR UNKNOWN INDICATION
     Dosage: 30 MILLIGRAM
     Route: 048
  10. ALLOPURINOL [Concomitant]
     Indication: PRODUCT USED FOR UNKNOWN INDICATION
     Dosage: 100 MILLIGRAM
     Route: 048
  11. SERTRALINE HCL [Concomitant]
     Indication: PRODUCT USED FOR UNKNOWN INDICATION
     Dosage: 25 MILLIGRAM
     Route: 048
  12. TAMSULOSIN HCL [Concomitant]
     Indication: PRODUCT USED FOR UNKNOWN INDICATION
     Dosage: .4 MILLIGRAM
     Route: 048
  13. STIMATE [Concomitant]
     Indication: HAEMORRHAGE
     Dosage: 1.5 MILLIGRAM/MILLILITERS
     Route: 045
  14. BIOTENE PBF [Concomitant]
     Indication: DRY MOUTH
     Route: 065
  15. PRILOSEC [Concomitant]
     Indication: PRODUCT USED FOR UNKNOWN INDICATION
     Dosage: 20 MILLIGRAM
     Route: 048
  16. KEFLEX [Concomitant]
     Indication: PRODUCT USED FOR UNKNOWN INDICATION
     Dosage: 2000 MILLIGRAM
     Route: 048
  17. ENOXAPARIN SODIUM [Concomitant]
     Indication: PRODUCT USED FOR UNKNOWN INDICATION
     Dosage: 40MG/0.4ML
     Route: 050

REACTIONS (8)
  - Pleural effusion [Unknown]
  - Rib fracture [Unknown]
  - Urinary retention [Unknown]
  - Haematuria [Unknown]
  - Fall [Unknown]
  - Insomnia [Unknown]
  - Fatigue [Unknown]
  - Hypotension [Unknown]
